FAERS Safety Report 9502555 (Version 1)
Quarter: 2013Q3

REPORT INFORMATION
  Report Type: Spontaneous
  Country: US (occurrence: US)
  Receive Date: 20130906
  Receipt Date: 20130906
  Transmission Date: 20140515
  Serious: Yes (Other)
  Sender: FDA-Public Use
  Company Number: US-ROCHE-1270693

PATIENT
  Age: 47 Year
  Sex: Female

DRUGS (1)
  1. XOLAIR [Suspect]
     Indication: ASTHMA
     Route: 058
     Dates: start: 201210

REACTIONS (5)
  - Sinusitis [Unknown]
  - Anxiety [Unknown]
  - Urticaria [Unknown]
  - Cancer surgery [Unknown]
  - Dental implantation [Unknown]
